FAERS Safety Report 9511248 (Version 1)
Quarter: 2013Q1

REPORT INFORMATION
  Report Type: Spontaneous
  Country: US (occurrence: None)
  Receive Date: 20130305
  Receipt Date: 20130305
  Transmission Date: 20140127
  Serious: Yes (Hospitalization)
  Sender: FDA-Public Use
  Company Number: 163-21880-12122433

PATIENT
  Age: 72 Year
  Sex: Female
  Weight: 64 kg

DRUGS (6)
  1. REVLIMID [Suspect]
     Indication: PLASMA CELL MYELOMA
     Dates: start: 20121204, end: 20121217
  2. LEXAPRO(ESCITALOPRAM OXALATE)(UNKNOWN) [Concomitant]
  3. AMBIEN(ZOLPIDEM TARTRATE)(UNKNOWN) [Concomitant]
  4. MAXZIDE(DYAZIDE)(UNKNOWN) [Concomitant]
  5. SYNTHROID(LEVOTHYROXINE SODIUM)(UNKNOWN) [Concomitant]
  6. ATENOLOL [Suspect]

REACTIONS (2)
  - Pulmonary embolism [None]
  - Thrombosis [None]
